FAERS Safety Report 5642482-3 (Version None)
Quarter: 2008Q1

REPORT INFORMATION
  Report Type: 
  Country: None (occurrence: None)
  Receive Date: 20080228
  Receipt Date: 20080218
  Transmission Date: 20080703
  Serious: Yes (Hospitalization, Other)
  Sender: FDA-Public Use
  Company Number: DE-JNJFOC-20070805388

PATIENT
  Age: 68 Year
  Sex: Male

DRUGS (7)
  1. TOPAMAX [Suspect]
     Indication: EPILEPSY
     Dosage: 50MG-0MG-50MG
     Route: 048
  2. SOTALOL [Concomitant]
  3. ALLOPURINOL [Concomitant]
  4. BENAZEPRIL HYDROCHLORIDE [Concomitant]
  5. HYDROCHLOROTHIAZIDE [Concomitant]
  6. SIMVASTATIN [Concomitant]
  7. MARCUMAR [Concomitant]

REACTIONS (3)
  - DIARRHOEA [None]
  - MALABSORPTION [None]
  - WEIGHT DECREASED [None]
